FAERS Safety Report 22602754 (Version 1)
Quarter: 2023Q2

REPORT INFORMATION
  Report Type: Spontaneous
  Country: US (occurrence: US)
  Receive Date: 20230615
  Receipt Date: 20230615
  Transmission Date: 20230722
  Serious: No
  Sender: FDA-Public Use
  Company Number: US-SA-SAC20230614000524

PATIENT
  Age: 59 Year
  Sex: Female
  Weight: 130.6 kg

DRUGS (15)
  1. DUPIXENT [Suspect]
     Active Substance: DUPILUMAB
     Indication: Nasal polyps
     Dosage: 300 MG, QOW
     Route: 058
     Dates: start: 20230501
  2. METAMUCIL THERAPY FOR REGULARITY [Concomitant]
     Active Substance: PSYLLIUM HUSK
     Dosage: UNK
  3. TUMS [Concomitant]
     Active Substance: CALCIUM CARBONATE
     Dosage: UNK
  4. ALEVE [Concomitant]
     Active Substance: NAPROXEN SODIUM
  5. VITAMIN D NOS [Concomitant]
     Active Substance: VITAMIN D NOS
  6. MINERALS\VITAMINS [Concomitant]
     Active Substance: MINERALS\VITAMINS
  7. OMEPRAZOLE [Concomitant]
     Active Substance: OMEPRAZOLE
  8. CLARITIN [Concomitant]
     Active Substance: LORATADINE
  9. MOUNJARO [Concomitant]
     Active Substance: TIRZEPATIDE
  10. ASPIRIN [Concomitant]
     Active Substance: ASPIRIN
  11. BONIVA [Concomitant]
     Active Substance: IBANDRONATE SODIUM
  12. HUMALOG [Concomitant]
     Active Substance: INSULIN LISPRO
  13. LANTUS [Concomitant]
     Active Substance: INSULIN GLARGINE
  14. METFORMIN HYDROCHLORIDE [Concomitant]
     Active Substance: METFORMIN HYDROCHLORIDE
  15. EPIPEN [Concomitant]
     Active Substance: EPINEPHRINE

REACTIONS (2)
  - Oral herpes [Recovering/Resolving]
  - Dry eye [Not Recovered/Not Resolved]

NARRATIVE: CASE EVENT DATE: 20230101
